FAERS Safety Report 8680537 (Version 3)
Quarter: 2017Q4

REPORT INFORMATION
  Report Type: Report from Study
  Country: DE (occurrence: DE)
  Receive Date: 20120724
  Receipt Date: 20171115
  Transmission Date: 20180321
  Serious: Yes (Death, Hospitalization)
  Sender: FDA-Public Use
  Company Number: DE-ROCHE-1091168

PATIENT
  Age: 59 Year
  Sex: Female
  Weight: 67 kg

DRUGS (6)
  1. XELODA [Suspect]
     Active Substance: CAPECITABINE
     Indication: BREAST CANCER
     Route: 048
     Dates: end: 20120709
  2. BEVACIZUMAB. [Suspect]
     Active Substance: BEVACIZUMAB
     Indication: BREAST CANCER
     Route: 042
  3. PANTOPRAZOL [Concomitant]
     Active Substance: PANTOPRAZOLE SODIUM
     Indication: PROPHYLAXIS AGAINST GASTROINTESTINAL ULCER
     Route: 048
  4. OXYGESIC [Concomitant]
     Active Substance: OXYCODONE
     Indication: BONE PAIN
     Route: 048
  5. VOLTAREN RESINAT [Concomitant]
     Active Substance: DICLOFENAC
     Indication: BONE PAIN
     Route: 048
  6. XELODA [Suspect]
     Active Substance: CAPECITABINE
     Route: 065
     Dates: start: 20120604, end: 20120625

REACTIONS (4)
  - Hypotension [Fatal]
  - Hypothyroidism [Fatal]
  - Malignant neoplasm progression [Fatal]
  - Dehydration [Fatal]

NARRATIVE: CASE EVENT DATE: 20120716
